FAERS Safety Report 12933132 (Version 2)
Quarter: 2016Q4

REPORT INFORMATION
  Report Type: Not Available
  Country: IT (occurrence: IT)
  Receive Date: 20161111
  Receipt Date: 20161118
  Transmission Date: 20170207
  Serious: Yes (Hospitalization)
  Sender: FDA-Public Use
  Company Number: IT-MUNDIPHARMA DS AND PHARMACOVIGILANCE-GBR-2016-0041487

PATIENT
  Age: 47 Year
  Sex: Female

DRUGS (4)
  1. TAVOR (LORAZEPAM) [Concomitant]
     Active Substance: LORAZEPAM
     Dosage: 1 POSOLOGIC UNIT (1MG STRENGTH)
     Route: 048
  2. LASIX [Concomitant]
     Active Substance: FUROSEMIDE
     Dosage: 50 MG, UNK (25MG STRENGTH)
     Route: 048
  3. LAEVOLAC EPS [Concomitant]
     Dosage: 1 POSOLOGIC UNIT (66.7 G/100 ML)
     Route: 048
  4. TARGIN [Suspect]
     Active Substance: NALOXONE HYDROCHLORIDE\OXYCODONE HYDROCHLORIDE
     Indication: PRODUCT USED FOR UNKNOWN INDICATION
     Dosage: 2 POSOLOGIC UNIT/DAY (5 MG/2.5 MG STRENGTH)
     Route: 065
     Dates: start: 20161006, end: 20161006

REACTIONS (5)
  - Constipation [Recovered/Resolved]
  - Bradyphrenia [Recovered/Resolved]
  - Hyperammonaemia [Recovered/Resolved]
  - Contraindicated product administered [Recovered/Resolved]
  - Confusional state [Recovered/Resolved]

NARRATIVE: CASE EVENT DATE: 20161006
